FAERS Safety Report 7717204-2 (Version None)
Quarter: 2011Q3

REPORT INFORMATION
  Report Type: 
  Country: None (occurrence: None)
  Receive Date: 20110826
  Receipt Date: 20110826
  Transmission Date: 20111222
  Serious: Yes (Hospitalization)
  Sender: FDA-Public Use
  Company Number: None

PATIENT
  Age: 74 Year
  Sex: Female
  Weight: 53 kg

DRUGS (11)
  1. ZOFRAN [Concomitant]
  2. SYNTHROID [Concomitant]
  3. ACETAMINOPHEN [Concomitant]
  4. AVASTIN [Suspect]
     Indication: METASTATIC GASTRIC CANCER
     Dosage: BEVACIZUMAB 10MG/KG Q 2 WKS IV
     Route: 042
     Dates: start: 20100818, end: 20110823
  5. LOPERAMIDE HCL [Concomitant]
  6. BENADRYL [Concomitant]
  7. DEXAMETHASONE PRE-CHEMO [Concomitant]
  8. NORVASC [Concomitant]
  9. PALONOSETRON  PRE CHEMO [Concomitant]
  10. 5 FU , LEUCOVORIN [Suspect]
     Indication: METASTATIC GASTRIC CANCER
     Dosage: 5 FU + LEUCOVORIN Q 2 WKS IV
     Route: 042
     Dates: start: 20100818, end: 20110823
  11. METOPROLOL TARTRATE [Concomitant]

REACTIONS (1)
  - IDIOPATHIC THROMBOCYTOPENIC PURPURA [None]
